FAERS Safety Report 5725067-X (Version None)
Quarter: 2008Q2

REPORT INFORMATION
  Report Type: 
  Country: None (occurrence: None)
  Receive Date: 20080501
  Receipt Date: 20080428
  Transmission Date: 20081010
  Serious: Yes (Disabling)
  Sender: FDA-Public Use
  Company Number: CA-BRISTOL-MYERS SQUIBB COMPANY-14121628

PATIENT
  Age: 52 Year
  Sex: Female

DRUGS (4)
  1. ORENCIA [Suspect]
     Indication: RHEUMATOID ARTHRITIS
     Dosage: 500 MG (2 VIALS) - MONTHLY.
     Route: 042
     Dates: start: 20071001
  2. METHOTREXATE [Concomitant]
  3. PREDNISONE [Concomitant]
  4. INDOMETHACIN [Concomitant]

REACTIONS (1)
  - INTERSTITIAL LUNG DISEASE [None]
